FAERS Safety Report 9420061 (Version 1)
Quarter: 2013Q3

REPORT INFORMATION
  Report Type: Spontaneous
  Country: FR (occurrence: FR)
  Receive Date: 20130725
  Receipt Date: 20130725
  Transmission Date: 20140515
  Serious: Yes (Hospitalization)
  Sender: FDA-Public Use
  Company Number: FR-TEVA-421318ISR

PATIENT
  Age: 78 Year
  Sex: Female

DRUGS (10)
  1. FUROSEMIDE TEVA 40 MG [Suspect]
     Dosage: 80 MILLIGRAM DAILY;
     Route: 048
     Dates: start: 201303, end: 20130605
  2. SELOKEN 100 MG [Concomitant]
     Dosage: 100 MILLIGRAM DAILY;
     Route: 048
     Dates: start: 201303
  3. COUMADINE 2 MG [Concomitant]
     Indication: INTERNATIONAL NORMALISED RATIO ABNORMAL
     Route: 048
     Dates: start: 201303
  4. LYRICA 75 MG [Concomitant]
     Dosage: 150 MILLIGRAM DAILY;
     Route: 048
     Dates: start: 201303
  5. SERESTA 50 MG [Concomitant]
     Dosage: 50 MILLIGRAM DAILY;
     Route: 048
     Dates: start: 201303
  6. PROZAC 20 MG [Concomitant]
     Dosage: 20 MILLIGRAM DAILY;
     Route: 048
     Dates: start: 201303
  7. IMOVANE 7.5 MG [Concomitant]
     Dosage: 7.5 MILLIGRAM DAILY;
     Route: 048
     Dates: start: 201303
  8. TAHOR 10 MG [Concomitant]
     Dosage: 10 MILLIGRAM DAILY;
     Route: 048
     Dates: start: 201303
  9. NOVONORM 1 MG [Concomitant]
     Dosage: 1 MILLIGRAM DAILY;
     Route: 048
     Dates: start: 201303
  10. LANTUS [Concomitant]
     Dosage: 14 IU (INTERNATIONAL UNIT) DAILY;
     Route: 058
     Dates: start: 201303

REACTIONS (2)
  - Cardiac failure [Recovered/Resolved]
  - Drug dose omission [Unknown]
